APPROVED DRUG PRODUCT: DOXYCYCLINE HYCLATE
Active Ingredient: DOXYCYCLINE HYCLATE
Strength: EQ 100MG BASE
Dosage Form/Route: TABLET;ORAL
Application: A210664 | Product #001 | TE Code: AB
Applicant: ACELLA PHARMACEUTICALS LLC
Approved: Mar 16, 2020 | RLD: No | RS: No | Type: RX